FAERS Safety Report 20091277 (Version 1)
Quarter: 2021Q4

REPORT INFORMATION
  Report Type: Spontaneous
  Country: US (occurrence: None)
  Receive Date: 20211119
  Receipt Date: 20211119
  Transmission Date: 20220303
  Serious: Yes (Other)
  Sender: FDA-Public Use
  Company Number: None

PATIENT
  Age: 70 Year
  Sex: Male

DRUGS (1)
  1. FENTANYL [Suspect]
     Active Substance: FENTANYL
     Indication: Pain
     Dosage: FREQUENCY : ONCE;?
     Route: 042
     Dates: start: 20211030, end: 20211030

REACTIONS (3)
  - Sedation [None]
  - Somnolence [None]
  - Respiratory depression [None]

NARRATIVE: CASE EVENT DATE: 20211030
